FAERS Safety Report 7801972-5 (Version None)
Quarter: 2011Q4

REPORT INFORMATION
  Report Type: 
  Country: None (occurrence: None)
  Receive Date: 20111007
  Receipt Date: 20110926
  Transmission Date: 20120403
  Serious: Yes (Hospitalization)
  Sender: FDA-Public Use
  Company Number: US-BAYER-2011-023774

PATIENT
  Age: 21 Year
  Sex: Female
  Weight: 90.249 kg

DRUGS (18)
  1. NASONEX [Concomitant]
     Dosage: UNK
     Dates: start: 20050501, end: 20101201
  2. LEXAPRO [Concomitant]
     Dosage: UNK
     Dates: start: 20091201, end: 20100901
  3. NORTRIPTYLINE HCL [Concomitant]
     Indication: HEADACHE
     Dosage: UNK
     Dates: start: 20100201
  4. YAZ [Suspect]
     Indication: CONTRACEPTION
     Dosage: UNK
     Route: 048
     Dates: start: 20081001, end: 20100201
  5. CAFFEINE CITRATE [Concomitant]
  6. SEROQUEL [Concomitant]
     Indication: DEPRESSION
     Dosage: UNK
     Dates: start: 20090601
  7. FISH OIL [Concomitant]
     Dosage: UNK
     Dates: start: 20100206
  8. MELOXICAM [Concomitant]
     Indication: HEADACHE
     Dosage: UNK
     Dates: start: 20090201
  9. MULTI-VITAMIN [Concomitant]
     Dosage: UNK
     Dates: start: 20100206
  10. TRICOR [Concomitant]
     Dosage: UNK
     Dates: start: 20100101
  11. TOPIRAMATE [Concomitant]
     Indication: HEADACHE
     Dosage: UNK
     Dates: start: 20100901
  12. PRISTIQ [Concomitant]
     Dosage: UNK
     Dates: start: 20090501, end: 20101001
  13. DIAMOX SRC [Concomitant]
     Dosage: UNK
     Dates: start: 20100206
  14. LORAZEPAM [Concomitant]
     Indication: ANXIETY
     Dosage: UNK
     Dates: start: 20091101
  15. CALCIUM MAGNESIUM ZINC [Concomitant]
     Dosage: UNK
     Dates: start: 20100206
  16. DOXYCYCLINE HYCLATE [Concomitant]
     Indication: ACNE
     Dosage: UNK
     Dates: start: 20100401, end: 20110301
  17. CYMBALTA [Concomitant]
     Indication: ANXIETY
     Dosage: UNK
     Dates: start: 20100901
  18. FLAXSEED OIL [Concomitant]
     Dosage: UNK
     Dates: start: 20100206

REACTIONS (2)
  - CEREBROVASCULAR ACCIDENT [None]
  - INTRACRANIAL VENOUS SINUS THROMBOSIS [None]
